FAERS Safety Report 6076654-3 (Version None)
Quarter: 2009Q1

REPORT INFORMATION
  Report Type: 
  Country: None (occurrence: None)
  Receive Date: 20090213
  Receipt Date: 20090202
  Transmission Date: 20090719
  Serious: Yes (Hospitalization)
  Sender: FDA-Public Use
  Company Number: US-BAXTER-2009BH001907

PATIENT
  Age: 82 Year
  Sex: Male
  Weight: 78 kg

DRUGS (3)
  1. DIANEAL [Suspect]
     Indication: PERITONEAL DIALYSIS
     Route: 033
     Dates: start: 20081031, end: 20090123
  2. DIANEAL [Suspect]
     Route: 033
     Dates: start: 20090125, end: 20090201
  3. DIANEAL [Suspect]
     Route: 033
     Dates: start: 20090201

REACTIONS (1)
  - UMBILICAL HERNIA [None]
